FAERS Safety Report 7449687-X (Version None)
Quarter: 2011Q2

REPORT INFORMATION
  Report Type: 
  Country: None (occurrence: None)
  Receive Date: 20110421
  Receipt Date: 20110407
  Transmission Date: 20111010
  Serious: Yes (Other)
  Sender: FDA-Public Use
  Company Number: PHHY2011FR30410

PATIENT
  Age: 73 Year
  Sex: Male

DRUGS (3)
  1. VISUDYNE [Suspect]
     Dates: start: 20101101, end: 20101101
  2. LUCENTIS [Suspect]
     Dates: start: 20101119, end: 20101119
  3. FLUORESCEIN SODIUM [Suspect]
     Dates: start: 20101101, end: 20101101

REACTIONS (3)
  - TOXIC SKIN ERUPTION [None]
  - URTICARIA [None]
  - LYMPHOCYTE STIMULATION TEST POSITIVE [None]
